FAERS Safety Report 8967006 (Version 1)
Quarter: 2012Q4

REPORT INFORMATION
  Report Type: 
  Country: GB (occurrence: GB)
  Receive Date: 20121214
  Receipt Date: 20121214
  Transmission Date: 20130627
  Serious: Yes (Other)
  Sender: FDA-Public Use
  Company Number: GB-MYLANLABS-2012S1025440

PATIENT
  Sex: Female

DRUGS (5)
  1. OMEPRAZOLE [Suspect]
     Route: 064
  2. CO-CODAMOL [Suspect]
     Route: 064
  3. FOLIC ACID [Suspect]
     Route: 064
  4. HYDROXOCOBALAMIN [Suspect]
     Route: 064
  5. PREGABALIN [Suspect]
     Route: 064

REACTIONS (2)
  - Exposure during pregnancy [Unknown]
  - Hip dysplasia [Unknown]
